FAERS Safety Report 9771355 (Version 2)
Quarter: 2013Q4

REPORT INFORMATION
  Report Type: Report from Study
  Country: AR (occurrence: AR)
  Receive Date: 20131218
  Receipt Date: 20131218
  Transmission Date: 20140711
  Serious: Yes (Hospitalization)
  Sender: FDA-Public Use
  Company Number: PHHY2013AR145612

PATIENT
  Age: 71 Year
  Sex: Female

DRUGS (3)
  1. DIOVAN [Suspect]
     Indication: HYPERTENSION
     Dosage: 2 DF, (160 MG) DAILY
     Route: 048
     Dates: start: 201310
  2. DIOVAN [Suspect]
     Indication: CARDIAC DISORDER
  3. DIOVAN [Suspect]
     Indication: OFF LABEL USE

REACTIONS (6)
  - Drug intolerance [Recovering/Resolving]
  - General physical condition abnormal [Recovering/Resolving]
  - Injury [Recovering/Resolving]
  - Swelling [Recovering/Resolving]
  - Local swelling [Recovering/Resolving]
  - Vision blurred [Not Recovered/Not Resolved]
